FAERS Safety Report 14517878 (Version 1)
Quarter: 2018Q1

REPORT INFORMATION
  Report Type: Spontaneous
  Country: US (occurrence: US)
  Receive Date: 20180212
  Receipt Date: 20180212
  Transmission Date: 20180509
  Serious: No
  Sender: FDA-Public Use
  Company Number: US-BAYER-2018-025244

PATIENT

DRUGS (1)
  1. MIRALAX [Suspect]
     Active Substance: POLYETHYLENE GLYCOL 3350
     Indication: PROSTATIC OPERATION
     Dosage: UNK
     Route: 048

REACTIONS (8)
  - Abdominal pain upper [Unknown]
  - Vomiting [Unknown]
  - Back pain [Unknown]
  - Pelvic pain [Unknown]
  - Product use in unapproved indication [Unknown]
  - Pain [Unknown]
  - Drug ineffective [Unknown]
  - Diarrhoea [Unknown]
